FAERS Safety Report 15886198 (Version 1)
Quarter: 2019Q1

REPORT INFORMATION
  Report Type: Spontaneous
  Country: FR (occurrence: FR)
  Receive Date: 20190129
  Receipt Date: 20190129
  Transmission Date: 20190417
  Serious: Yes (Life-Threatening, Hospitalization)
  Sender: FDA-Public Use
  Company Number: FR-PFIZER INC-2019034742

PATIENT
  Age: 82 Year
  Sex: Female
  Weight: 92 kg

DRUGS (3)
  1. VANCOMYCIN [VANCOMYCIN HYDROCHLORIDE] [Suspect]
     Active Substance: VANCOMYCIN HYDROCHLORIDE
     Indication: INFECTION
     Dosage: 1 G, UNK
     Route: 042
     Dates: start: 20181107, end: 20181108
  2. MABELIO [Suspect]
     Active Substance: CEFTOBIPROLE
     Indication: INFECTION
     Dosage: 1500 MG, UNK
     Route: 042
     Dates: start: 20181106, end: 20181107
  3. ZYVOXID [Suspect]
     Active Substance: LINEZOLID
     Indication: INFECTION
     Dosage: 1200 MG, UNK
     Route: 042
     Dates: start: 20181108, end: 20181110

REACTIONS (2)
  - Drug reaction with eosinophilia and systemic symptoms [Recovering/Resolving]
  - Toxic skin eruption [Recovering/Resolving]

NARRATIVE: CASE EVENT DATE: 20181106
